FAERS Safety Report 9360783 (Version 1)
Quarter: 2013Q2

REPORT INFORMATION
  Report Type: Spontaneous
  Country: PK (occurrence: PK)
  Receive Date: 20130621
  Receipt Date: 20130621
  Transmission Date: 20140414
  Serious: Yes (Hospitalization)
  Sender: FDA-Public Use
  Company Number: PK-ELI_LILLY_AND_COMPANY-PK201306004499

PATIENT
  Age: 66 Year
  Sex: Male

DRUGS (1)
  1. HUMULIN REGULAR [Suspect]
     Indication: DIABETES MELLITUS
     Dosage: 20 DF, TID
     Route: 058
     Dates: start: 20130611

REACTIONS (1)
  - Hyperglycaemia [Recovering/Resolving]
